FAERS Safety Report 24267887 (Version 3)
Quarter: 2025Q1

REPORT INFORMATION
  Report Type: Spontaneous
  Country: AR (occurrence: AR)
  Receive Date: 20240830
  Receipt Date: 20250103
  Transmission Date: 20250408
  Serious: No
  Sender: PFIZER
  Company Number: AR-PFIZER INC-202400240137

PATIENT
  Age: 10 Year
  Sex: Female

DRUGS (1)
  1. GENOTROPIN [Suspect]
     Active Substance: SOMATROPIN
     Indication: Foetal growth restriction
     Dosage: 1.8 MG, WEEKLY
     Dates: start: 20191121

REACTIONS (4)
  - Wrong technique in device usage process [Unknown]
  - Device information output issue [Unknown]
  - Device delivery system issue [Unknown]
  - Expired device used [Unknown]

NARRATIVE: CASE EVENT DATE: 20240818
